FAERS Safety Report 9349043 (Version 1)
Quarter: 2013Q2

REPORT INFORMATION
  Report Type: Spontaneous
  Country: JP (occurrence: JP)
  Receive Date: 20130614
  Receipt Date: 20130614
  Transmission Date: 20140414
  Serious: Yes (Other)
  Sender: FDA-Public Use
  Company Number: JP-PERRIGO-13JP006119

PATIENT
  Age: 83 Year
  Sex: Female

DRUGS (5)
  1. MIDAZOLAM HCL RX 2 MG/ML 7H8 [Suspect]
     Indication: SEDATION
     Dosage: 1 MG, SINGLE
     Route: 065
  2. BUPIVACAINE [Suspect]
     Indication: SPINAL ANAESTHESIA
     Dosage: 2ML, SINGLE
     Route: 008
  3. ROPIVACAINE [Suspect]
     Indication: NERVE BLOCK
     Dosage: 15 ML, SINGLE
     Route: 050
  4. LIDOCAINE [Suspect]
     Indication: NERVE BLOCK
     Dosage: 10 ML, SINGLE
     Route: 050
  5. PROPOFOL [Suspect]
     Indication: SEDATION
     Dosage: 1.5 MG/KG/HR
     Route: 042

REACTIONS (2)
  - Oxygen saturation decreased [Recovering/Resolving]
  - Carbon dioxide increased [Recovering/Resolving]
